FAERS Safety Report 5024784-7 (Version None)
Quarter: 2006Q2

REPORT INFORMATION
  Report Type: 
  Country: None (occurrence: None)
  Receive Date: 20060613
  Receipt Date: 20060317
  Transmission Date: 20061013
  Serious: Yes (Other)
  Sender: FDA-Public Use
  Company Number: US-GLAXOSMITHKLINE-A0598014A

PATIENT
  Age: 81 Year
  Sex: Male

DRUGS (2)
  1. OS-CAL 500+D TABLETS [Suspect]
     Indication: DRUG USE FOR UNKNOWN INDICATION
     Route: 048
  2. VITAMINS [Concomitant]

REACTIONS (1)
  - NEPHROLITHIASIS [None]
